FAERS Safety Report 7320163-8 (Version None)
Quarter: 2011Q1

REPORT INFORMATION
  Report Type: 
  Country: None (occurrence: None)
  Receive Date: 20110228
  Receipt Date: 20110216
  Transmission Date: 20110831
  Serious: Yes (Other)
  Sender: FDA-Public Use
  Company Number: PHHY2011TR13312

PATIENT
  Sex: Male

DRUGS (1)
  1. EXJADE [Suspect]
     Indication: THALASSAEMIA BETA
     Dosage: UNK
     Route: 048
     Dates: start: 20090101, end: 20110213

REACTIONS (2)
  - IRON OVERLOAD [None]
  - HEPATIC ENZYME INCREASED [None]
